FAERS Safety Report 24563422 (Version 1)
Quarter: 2024Q4

REPORT INFORMATION
  Report Type: Spontaneous
  Country: CA (occurrence: CA)
  Receive Date: 20241030
  Receipt Date: 20241030
  Transmission Date: 20250115
  Serious: Yes (Other)
  Sender: SUNOVION
  Company Number: CA-SMPA-2024SPA004212

PATIENT

DRUGS (5)
  1. APTIOM [Suspect]
     Active Substance: ESLICARBAZEPINE ACETATE
     Indication: Epilepsy
     Dosage: 200 MG, QD
     Route: 048
  2. APTIOM [Suspect]
     Active Substance: ESLICARBAZEPINE ACETATE
     Dosage: 400 MG
     Route: 048
  3. APTIOM [Suspect]
     Active Substance: ESLICARBAZEPINE ACETATE
     Dosage: 200 MG, QD
     Route: 048
  4. PHENOBARBITAL [Suspect]
     Active Substance: PHENOBARBITAL
     Indication: Epilepsy
     Dosage: 150 MG
     Route: 065
  5. PROVERA [Concomitant]
     Active Substance: MEDROXYPROGESTERONE ACETATE
     Dosage: 90 MG
     Route: 065

REACTIONS (12)
  - Petit mal epilepsy [Unknown]
  - Syncope [Recovered/Resolved]
  - Hyperacusis [Unknown]
  - Contusion [Unknown]
  - Hypersomnia [Recovering/Resolving]
  - Drug interaction [Unknown]
  - Headache [Recovering/Resolving]
  - Dizziness [Unknown]
  - Fatigue [Unknown]
  - Fall [Unknown]
  - Wrong technique in product usage process [Unknown]
  - Underdose [Unknown]
